FAERS Safety Report 5723841-7 (Version None)
Quarter: 2008Q2

REPORT INFORMATION
  Report Type: 
  Country: None (occurrence: None)
  Receive Date: 20080429
  Receipt Date: 20080429
  Transmission Date: 20081010
  Serious: No
  Sender: FDA-Public Use
  Company Number: None

PATIENT
  Age: 51 Year
  Sex: Male
  Weight: 100.2449 kg

DRUGS (1)
  1. GABAPENTIN [Suspect]
     Indication: PAIN MANAGEMENT
     Dosage: 300 MG 3 TIMES A DAY PO
     Route: 048
     Dates: start: 20070906, end: 20080120

REACTIONS (7)
  - ARTHRALGIA [None]
  - DISTURBANCE IN ATTENTION [None]
  - DYSKINESIA [None]
  - IMPAIRED DRIVING ABILITY [None]
  - IMPAIRED WORK ABILITY [None]
  - MEMORY IMPAIRMENT [None]
  - MUSCLE SPASMS [None]
